FAERS Safety Report 4952676-8 (Version None)
Quarter: 2006Q1

REPORT INFORMATION
  Report Type: 
  Country: None (occurrence: None)
  Receive Date: 20060324
  Receipt Date: 20060314
  Transmission Date: 20060701
  Serious: Yes (Hospitalization)
  Sender: FDA-Public Use
  Company Number: JP-ABBOTT-06P-087-0328130-00

PATIENT
  Age: 41 Year
  Sex: Male

DRUGS (4)
  1. CLARITHROMYCIN [Suspect]
     Indication: BRONCHITIS CHRONIC
     Route: 048
     Dates: start: 20050620, end: 20050912
  2. THEOPHYLLINE [Suspect]
     Indication: EMPHYSEMA
     Route: 048
     Dates: start: 20030729, end: 20050912
  3. PROCATEROL HCL [Suspect]
     Indication: EMPHYSEMA
     Route: 048
     Dates: start: 20030729, end: 20050912
  4. POLAPREZINC [Suspect]
     Indication: GASTRITIS
     Route: 048
     Dates: start: 20030908, end: 20050912

REACTIONS (1)
  - EOSINOPHILIC PNEUMONIA [None]
